FAERS Safety Report 8187429-3 (Version None)
Quarter: 2012Q1

REPORT INFORMATION
  Report Type: 
  Country: None (occurrence: None)
  Receive Date: 20120302
  Receipt Date: 20120220
  Transmission Date: 20120608
  Serious: Yes (Life-Threatening)
  Sender: FDA-Public Use
  Company Number: 2012SP009579

PATIENT
  Age: 60 Year
  Sex: Male

DRUGS (3)
  1. NORMAL HUMAN IMMUNOGLOBULIN [Concomitant]
  2. NEORAL [Suspect]
     Indication: IMMUNOSUPPRESSION
     Dosage: PO
     Route: 048
     Dates: start: 20111115, end: 20120129
  3. NOXAFIL [Suspect]
     Indication: PRODUCT USED FOR UNKNOWN INDICATION
     Dosage: 200 MG;TID;PO
     Route: 048
     Dates: start: 20120127

REACTIONS (6)
  - HYPERTENSION [None]
  - BLOOD CREATINE INCREASED [None]
  - GRAFT VERSUS HOST DISEASE IN LUNG [None]
  - GRAFT VERSUS HOST DISEASE IN SKIN [None]
  - POSTERIOR REVERSIBLE ENCEPHALOPATHY SYNDROME [None]
  - DRUG INTERACTION [None]
